FAERS Safety Report 9625027 (Version 1)
Quarter: 2013Q4

REPORT INFORMATION
  Report Type: Report from Study
  Country: ES (occurrence: ES)
  Receive Date: 20131016
  Receipt Date: 20131016
  Transmission Date: 20140711
  Serious: Yes (Other)
  Sender: FDA-Public Use
  Company Number: ES-MERCK-1310ESP004111

PATIENT
  Age: 51 Year
  Sex: Male
  Weight: 74 kg

DRUGS (3)
  1. BOCEPREVIR [Suspect]
     Indication: CHRONIC HEPATITIS C
     Route: 048
  2. PEGINTRON [Suspect]
     Indication: CHRONIC HEPATITIS C
     Dosage: 120 MICROGRAM PER KILOGRAM, QW
     Dates: start: 20130607
  3. RIBAVIRIN [Suspect]
     Indication: CHRONIC HEPATITIS C
     Dosage: 1000 MG/DAY
     Route: 048
     Dates: start: 20130607

REACTIONS (1)
  - Neutropenia [Recovering/Resolving]
